FAERS Safety Report 10842462 (Version 1)
Quarter: 2015Q1

REPORT INFORMATION
  Report Type: Spontaneous
  Country: CH (occurrence: CH)
  Receive Date: 20150220
  Receipt Date: 20150220
  Transmission Date: 20150721
  Serious: Yes (Death, Hospitalization)
  Sender: FDA-Public Use
  Company Number: CH-TEVA-540619ISR

PATIENT
  Age: 84 Year
  Sex: Female

DRUGS (18)
  1. ELTROXIN LF 0.05MG [Concomitant]
     Dosage: .05 MILLIGRAM DAILY;
     Route: 065
  2. OXYCONTIN RETARD 10MG [Concomitant]
     Dosage: 10 MILLIGRAM DAILY; IN THE EVENING
     Route: 065
  3. NOVALGIN [Suspect]
     Active Substance: METAMIZOLE SODIUM
     Route: 048
  4. LETROZOL [Suspect]
     Active Substance: LETROZOLE
     Dosage: 2.5 MILLIGRAM DAILY; ADMINISTRATION OF A GENERIC, BRAND NAME UNKNOWN
     Route: 065
  5. PANTOZOL [Suspect]
     Active Substance: PANTOPRAZOLE SODIUM
     Dosage: 40 MILLIGRAM DAILY;
     Route: 065
  6. TOREM 10MG [Suspect]
     Active Substance: TORSEMIDE
     Dosage: 40 MILLIGRAM DAILY;
     Route: 065
     Dates: end: 20150108
  7. MOTILIUM 10MG [Concomitant]
     Route: 065
  8. DAFALGAN [Suspect]
     Active Substance: ACETAMINOPHEN
     Route: 065
  9. OXYCONTIN RETARD [Concomitant]
     Dosage: 20 MILLIGRAM DAILY; IN THE MORNING
     Route: 065
  10. SYMBICORT 200/6 TURBOHALER [Concomitant]
     Dosage: 4 DOSAGE FORMS DAILY;
     Route: 065
  11. IMIGRAN [Concomitant]
     Active Substance: SUMATRIPTAN SUCCINATE
     Dosage: AS REQUIRED, APPROXIMATELY ONCE DAILY
     Route: 065
  12. ELTROXIN LF 0.1MG [Concomitant]
     Dosage: .1 MILLIGRAM DAILY;
     Route: 065
  13. OXYCONTIN RETARD 20MG [Concomitant]
     Dosage: 20 MILLIGRAM DAILY; IN THE MORNING
     Route: 065
  14. CO-AMOXI-MEPHA [Suspect]
     Active Substance: AMOXICILLIN\CLAVULANATE POTASSIUM
     Indication: BRONCHOPNEUMONIA
     Dosage: DRUG WAS TAKEN FOR ABOUT 10 DAYS
     Route: 065
     Dates: end: 20150108
  15. COVERSUM N 5MG [Suspect]
     Active Substance: PERINDOPRIL ARGININE
     Indication: HYPERTENSION
     Dosage: 2.5 MILLIGRAM DAILY;
     Route: 065
  16. VI-DE 3 [Concomitant]
     Dosage: 8 GTT DAILY;
     Route: 065
  17. ARIMIDEX 1MG [Concomitant]
     Dosage: 1 MILLIGRAM DAILY;
     Route: 048
  18. OXYCONTIN RETARD [Concomitant]
     Dosage: 10 MILLIGRAM DAILY; IN THE EVENING
     Route: 065

REACTIONS (4)
  - Pyrexia [Unknown]
  - Pancytopenia [Fatal]
  - Asthenia [Unknown]
  - Neutropenia [Fatal]

NARRATIVE: CASE EVENT DATE: 20150108
